FAERS Safety Report 12334480 (Version 1)
Quarter: 2016Q2

REPORT INFORMATION
  Report Type: Spontaneous
  Country: US (occurrence: US)
  Receive Date: 20160504
  Receipt Date: 20160504
  Transmission Date: 20160815
  Serious: No
  Sender: FDA-Public Use
  Company Number: US-ROCHE-1687449

PATIENT
  Sex: Female
  Weight: 71.73 kg

DRUGS (2)
  1. ESBRIET [Suspect]
     Active Substance: PIRFENIDONE
     Indication: IDIOPATHIC PULMONARY FIBROSIS
     Route: 048
     Dates: start: 20151127
  2. ESBRIET [Suspect]
     Active Substance: PIRFENIDONE
     Dosage: WITH FOOD.
     Route: 048

REACTIONS (3)
  - Dizziness [Unknown]
  - Constipation [Unknown]
  - Nausea [Unknown]
